FAERS Safety Report 15947247 (Version 1)
Quarter: 2019Q1

REPORT INFORMATION
  Report Type: Spontaneous
  Country: IL (occurrence: IL)
  Receive Date: 20190212
  Receipt Date: 20190212
  Transmission Date: 20190417
  Serious: Yes (Hospitalization, Other)
  Sender: FDA-Public Use
  Company Number: IL-TEVA-2019-IL-1011581

PATIENT
  Age: 71 Year
  Sex: Female

DRUGS (19)
  1. AMARYL TAB 3 MG [Concomitant]
  2. INS LANTUS CRT 100 IU /1ML [Concomitant]
     Dosage: 100IU/1ML
  3. AEROVENT INH 0.02 MG /1INH [Concomitant]
     Dosage: 0.02MG/1INH
  4. NORMALOL TAB 50 MG [Concomitant]
  5. OPTALGIN DRP 500 MG /1ML [Concomitant]
  6. RISPOND TAB 1 MG [Concomitant]
  7. SOLVEX SOL 2MG /1ML [Concomitant]
  8. TRAZODONE HCL TAB 100 MG [Concomitant]
  9. FUSID (FUROSEMIDE) [Suspect]
     Active Substance: FUROSEMIDE
     Indication: HYPERTENSION
     Route: 065
  10. FOLIC ACID TAB 5 MG [Concomitant]
  11. PROTHIAZINE AMP50 MG /2ML [Concomitant]
     Dosage: AMP 50MG/2ML
  12. RISPERDAL TAB 4 MG [Concomitant]
  13. HALDOL INJ 5 MG /1ML [Concomitant]
  14. RAMIPRIL TAB 2.5 MG [Concomitant]
  15. BONDORMIN TAB 0.25 MG [Concomitant]
  16. CLEXANE INJ 40 MG /0.4ML [Concomitant]
     Dosage: 40MG/0.4ML
  17. ASPIRIN TAB 100 MG [Concomitant]
  18. CARDILOC TAB 10 MG [Concomitant]
  19. VIT B12(SOLGAR)SUBL TAB 1000 MCG [Concomitant]

REACTIONS (1)
  - Renal failure [Unknown]
